FAERS Safety Report 4918342-X (Version None)
Quarter: 2006Q1

REPORT INFORMATION
  Report Type: 
  Country: None (occurrence: None)
  Receive Date: 20060217
  Receipt Date: 20060217
  Transmission Date: 20060701
  Serious: No
  Sender: FDA-Public Use
  Company Number: None

PATIENT
  Sex: Male

DRUGS (4)
  1. NEURONTIN [Suspect]
     Indication: BACK PAIN
     Dates: start: 20050501
  2. NEURONTIN [Suspect]
     Indication: NECK PAIN
     Dates: start: 20050501
  3. NEURONTIN [Suspect]
     Indication: BACK PAIN
     Dates: start: 20050901
  4. NEURONTIN [Suspect]
     Indication: NECK PAIN
     Dates: start: 20050901

REACTIONS (1)
  - PHARMACEUTICAL PRODUCT COMPLAINT [None]
